FAERS Safety Report 5902337-3 (Version None)
Quarter: 2008Q3

REPORT INFORMATION
  Report Type: 
  Country: None (occurrence: None)
  Receive Date: 20080929
  Receipt Date: 20080916
  Transmission Date: 20090109
  Serious: No
  Sender: FDA-Public Use
  Company Number: US-B.I. PHARMACEUTICALS,INC./RIDGEFIELD-2008-BP-12420BP

PATIENT
  Age: 33 Year
  Sex: Female
  Weight: 73 kg

DRUGS (5)
  1. MIRAPEX [Suspect]
     Indication: RESTLESS LEGS SYNDROME
     Dosage: .125MG
     Dates: start: 20080806
  2. MIRAPEX [Suspect]
     Dosage: .25MG
     Dates: start: 20080516
  3. ZOLOFT [Concomitant]
     Dates: start: 20050101
  4. LAMICTAL [Concomitant]
     Dates: start: 20050101
  5. AMBIEN [Concomitant]
     Dates: start: 20050101

REACTIONS (1)
  - TREMOR [None]
